APPROVED DRUG PRODUCT: BETAMETHASONE DIPROPIONATE
Active Ingredient: BETAMETHASONE DIPROPIONATE
Strength: EQ 0.05% BASE
Dosage Form/Route: LOTION;TOPICAL
Application: A209896 | Product #001
Applicant: HIKMA PHARMACEUTICALS USA INC
Approved: Feb 6, 2018 | RLD: No | RS: No | Type: DISCN